FAERS Safety Report 13159298 (Version 1)
Quarter: 2017Q1

REPORT INFORMATION
  Report Type: Spontaneous
  Country: GB (occurrence: GB)
  Receive Date: 20170127
  Receipt Date: 20170127
  Transmission Date: 20170428
  Serious: Yes (Hospitalization, Other)
  Sender: FDA-Public Use
  Company Number: GB-AMGEN-GBRSP2017011552

PATIENT
  Age: 75 Year
  Sex: Female
  Weight: 40 kg

DRUGS (14)
  1. CO-AMOXICLAV [Concomitant]
     Active Substance: AMOXICILLIN\CLAVULANIC ACID
  2. PARACETAMOL [Concomitant]
     Active Substance: ACETAMINOPHEN
  3. ACLIDINIUM [Concomitant]
     Active Substance: ACLIDINIUM BROMIDE
  4. ATORVASTATIN [Concomitant]
     Active Substance: ATORVASTATIN
  5. FORMOTEROL FUMARATE DIHYDRATE [Concomitant]
     Active Substance: FORMOTEROL FUMARATE DIHYDRATE
  6. SALBUTAMOL [Concomitant]
     Active Substance: ALBUTEROL
  7. AZITHROMYCIN ANHYDROUS. [Concomitant]
     Active Substance: AZITHROMYCIN ANHYDROUS
  8. BUDESONIDE. [Concomitant]
     Active Substance: BUDESONIDE
  9. CARBOMER [Concomitant]
     Active Substance: CARBOMER
  10. NPLATE [Suspect]
     Active Substance: ROMIPLOSTIM
     Indication: IMMUNE THROMBOCYTOPENIC PURPURA
     Dosage: 250 MUG, QWK
     Route: 058
     Dates: start: 20161001
  11. BISOPROLOL [Concomitant]
     Active Substance: BISOPROLOL
  12. TRANEXAMIC ACID. [Concomitant]
     Active Substance: TRANEXAMIC ACID
  13. AMLODIPINE [Concomitant]
     Active Substance: AMLODIPINE BESYLATE
  14. OMEPRAZOLE. [Concomitant]
     Active Substance: OMEPRAZOLE

REACTIONS (6)
  - Atrial fibrillation [Unknown]
  - Lower respiratory tract infection [Unknown]
  - Palpitations [Unknown]
  - Dizziness [Unknown]
  - Malaise [Unknown]
  - Circulatory collapse [Unknown]

NARRATIVE: CASE EVENT DATE: 20170110
